FAERS Safety Report 23283606 (Version 1)
Quarter: 2023Q4

REPORT INFORMATION
  Report Type: Spontaneous
  Country: US (occurrence: US)
  Receive Date: 20231211
  Receipt Date: 20231211
  Transmission Date: 20240110
  Serious: Yes (Other)
  Sender: FDA-Public Use
  Company Number: US-UPSHER-SMITH LABORATORIES, LLC-2023USL00989

PATIENT
  Age: 3 Year

DRUGS (2)
  1. VIGADRONE [Suspect]
     Active Substance: VIGABATRIN
     Indication: Cerebral disorder
     Dosage: 500 MG (10 ML), 1X/DAY IN THE MORNING
     Route: 048
     Dates: start: 20231005
  2. VIGADRONE [Suspect]
     Active Substance: VIGABATRIN
     Dosage: 750 MG (15 ML), 1X/DAY IN THE EVENING
     Route: 048
     Dates: start: 20231005

REACTIONS (1)
  - Pneumonia aspiration [Unknown]

NARRATIVE: CASE EVENT DATE: 20231001
